FAERS Safety Report 10019405 (Version 2)
Quarter: 2014Q1

REPORT INFORMATION
  Report Type: Spontaneous
  Country: DE (occurrence: DE)
  Receive Date: 20140318
  Receipt Date: 20140318
  Transmission Date: 20141002
  Serious: Yes (Hospitalization)
  Sender: FDA-Public Use
  Company Number: DE-B.I. PHARMACEUTICALS,INC./RIDGEFIELD-2014-BI-06865DE

PATIENT
  Sex: Male
  Weight: 80 kg

DRUGS (4)
  1. PRADAXA [Suspect]
     Indication: ATRIAL FIBRILLATION
     Dosage: 110 MG
     Route: 065
     Dates: start: 201311, end: 201401
  2. KARVEDELOL [Concomitant]
     Dosage: 3X25
     Route: 048
  3. TORESEMID [Concomitant]
     Dosage: 10 MG
     Route: 048
  4. PANTOPRAZOL [Concomitant]
     Dosage: DAILY DOSE: 20
     Route: 048

REACTIONS (2)
  - Fall [Not Recovered/Not Resolved]
  - Haemorrhage [Not Recovered/Not Resolved]
